FAERS Safety Report 8574829-2 (Version None)
Quarter: 2012Q3

REPORT INFORMATION
  Report Type: 
  Country: None (occurrence: None)
  Receive Date: 20120807
  Receipt Date: 20120706
  Transmission Date: 20120928
  Serious: No
  Sender: FDA-Public Use
  Company Number: US-009507513-1207USA004014

PATIENT

DRUGS (7)
  1. PEGASYS [Suspect]
  2. ALLEGRA [Concomitant]
     Dosage: 30 MG, UNK
  3. NASACORT AQ [Concomitant]
     Dosage: 55 MICROGRAM, UNK
  4. VICTRELIS [Suspect]
     Dosage: 4 DF, TID
     Route: 048
  5. RIBAVIRIN [Suspect]
     Dosage: 800 UNK, QD
  6. SPRINTEC [Concomitant]
     Dosage: 28 TAB 28 DAYS
  7. TYLENOL (CAPLET) [Concomitant]
     Dosage: 650 MG, Q8H

REACTIONS (2)
  - THROAT LESION [None]
  - TONGUE DISORDER [None]
